FAERS Safety Report 25830876 (Version 1)
Quarter: 2025Q3

REPORT INFORMATION
  Report Type: Report from Study
  Country: CN (occurrence: CN)
  Receive Date: 20250922
  Receipt Date: 20250922
  Transmission Date: 20251021
  Serious: Yes (Death, Hospitalization)
  Sender: ROCHE
  Company Number: CH-ROCHE-10000390387

PATIENT

DRUGS (7)
  1. RITUXIMAB [Suspect]
     Active Substance: RITUXIMAB
     Indication: Glomerulonephritis membranous
     Route: 065
  2. OBINUTUZUMAB [Suspect]
     Active Substance: OBINUTUZUMAB
     Indication: Glomerulonephritis membranous
     Route: 042
  3. MYCOPHENOLATE MOFETIL [Suspect]
     Active Substance: MYCOPHENOLATE MOFETIL
     Indication: Glomerulonephritis membranous
     Route: 065
  4. CYCLOPHOSPHAMIDE [Suspect]
     Active Substance: CYCLOPHOSPHAMIDE
     Indication: Glomerulonephritis membranous
     Route: 065
  5. HERBALS [Suspect]
     Active Substance: HERBALS
     Indication: Glomerulonephritis membranous
     Route: 065
  6. LEFLUNOMIDE [Suspect]
     Active Substance: LEFLUNOMIDE
     Indication: Glomerulonephritis membranous
     Route: 065
  7. METHYLPREDNISOLONE [Suspect]
     Active Substance: METHYLPREDNISOLONE
     Indication: Premedication
     Route: 042

REACTIONS (12)
  - Infusion related reaction [Unknown]
  - Upper respiratory tract infection [Recovered/Resolved]
  - Urinary tract infection [Unknown]
  - Soft tissue infection [Recovered/Resolved]
  - Biliary tract infection [Unknown]
  - Pneumonia [Unknown]
  - Herpes zoster [Recovered/Resolved]
  - Hepatic function abnormal [Unknown]
  - Facial paralysis [Unknown]
  - Amenorrhoea [Unknown]
  - Tinnitus [Unknown]
  - Respiratory failure [Fatal]
